FAERS Safety Report 8817723 (Version 1)
Quarter: 2012Q4

REPORT INFORMATION
  Report Type: 
  Country: US (occurrence: US)
  Receive Date: 20121001
  Receipt Date: 20121001
  Transmission Date: 20130627
  Serious: No
  Sender: FDA-Public Use
  Company Number: US-PFIZER INC-2012240940

PATIENT
  Sex: Male

DRUGS (1)
  1. LYRICA [Suspect]
     Indication: PERIPHERAL COLDNESS
     Dosage: 50 mg, 1x/day
     Route: 048
     Dates: start: 201209

REACTIONS (12)
  - Drug ineffective for unapproved indication [Unknown]
  - Hot flush [Unknown]
  - Cold sweat [Unknown]
  - Insomnia [Unknown]
  - Thermohyperaesthesia [Unknown]
  - Chest discomfort [Unknown]
  - Dizziness [Unknown]
  - Anxiety [Unknown]
  - Hyperhidrosis [Unknown]
  - Vision blurred [Unknown]
  - Photosensitivity reaction [Unknown]
  - Off label use [Unknown]
